FAERS Safety Report 5780558-0 (Version None)
Quarter: 2008Q2

REPORT INFORMATION
  Report Type: 
  Country: None (occurrence: None)
  Receive Date: 20080620
  Receipt Date: 20080618
  Transmission Date: 20081010
  Serious: Yes (Death, Other)
  Sender: FDA-Public Use
  Company Number: PHHY2008GB11278

PATIENT

DRUGS (2)
  1. CLOZAPINE [Suspect]
     Indication: SCHIZOPHRENIA
  2. PINACLAV [Suspect]
     Indication: UPPER RESPIRATORY TRACT INFECTION
     Dosage: 250/125 MG

REACTIONS (9)
  - ARRHYTHMIA [None]
  - BRONCHOPNEUMONIA [None]
  - CIRCULATORY COLLAPSE [None]
  - COUGH [None]
  - DRUG LEVEL INCREASED [None]
  - DYSPNOEA [None]
  - FATIGUE [None]
  - NASOPHARYNGITIS [None]
  - TREMOR [None]
